FAERS Safety Report 8778717 (Version 1)
Quarter: 2012Q4

REPORT INFORMATION
  Report Type: Report from Study
  Country: US (occurrence: US)
  Receive Date: 20120913
  Receipt Date: 20120913
  Transmission Date: 20130627
  Serious: Yes (Hospitalization)
  Sender: FDA-Public Use
  Company Number: US-ROCHE-1111082

PATIENT
  Age: 68 Year
  Sex: Male
  Weight: 71.4 kg

DRUGS (8)
  1. AVASTIN [Suspect]
     Indication: NON-SMALL CELL LUNG CANCER
     Route: 042
     Dates: start: 20100317, end: 20100519
  2. AVASTIN [Suspect]
     Route: 042
     Dates: start: 20100609, end: 20100628
  3. PACLITAXEL [Suspect]
     Indication: NON-SMALL CELL LUNG CANCER
     Route: 042
     Dates: start: 20100317, end: 20100519
  4. CARBOPLATIN [Suspect]
     Indication: NON-SMALL CELL LUNG CANCER
     Route: 042
     Dates: start: 20100317, end: 20100519
  5. ATIVAN [Concomitant]
     Route: 065
     Dates: start: 20100627
  6. LORTAB [Concomitant]
     Route: 065
     Dates: start: 20100203
  7. MEGACE [Concomitant]
     Route: 065
     Dates: start: 20100429
  8. PRILOSEC [Concomitant]
     Route: 065
     Dates: start: 20100317

REACTIONS (1)
  - Mental status changes [Unknown]
